FAERS Safety Report 4451201-8 (Version None)
Quarter: 2004Q3

REPORT INFORMATION
  Report Type: 
  Country: None (occurrence: None)
  Receive Date: 20040914
  Receipt Date: 20040823
  Transmission Date: 20050211
  Serious: Yes (Other)
  Sender: FDA-Public Use
  Company Number: WAES 0408MEX00009

PATIENT
  Age: 31 Year
  Sex: Female

DRUGS (3)
  1. TIMOLOL MALEATE [Suspect]
     Indication: GLAUCOMA
     Dosage: OPHT
     Route: 047
  2. ATROPINE [Suspect]
     Indication: GLAUCOMA
     Dosage: OPHT
     Route: 047
  3. DEXAMETHASONE/NEOMYCINSO4/POLYMYXIN BSO4 [Concomitant]

REACTIONS (10)
  - ANTERIOR CHAMBER FLARE [None]
  - CONJUNCTIVAL HYPERAEMIA [None]
  - DRUG INEFFECTIVE [None]
  - EYE PAIN [None]
  - EYE REDNESS [None]
  - INTRAOCULAR PRESSURE INCREASED [None]
  - OPTIC NERVE CUP/DISC RATIO INCREASED [None]
  - PUPILLARY DISORDER [None]
  - STRABISMUS [None]
  - VISUAL ACUITY REDUCED [None]
